FAERS Safety Report 9899661 (Version 2)
Quarter: 2014Q1

REPORT INFORMATION
  Report Type: Spontaneous
  Country: US (occurrence: US)
  Receive Date: 20140214
  Receipt Date: 20140214
  Transmission Date: 20141002
  Serious: Yes (Disabling)
  Sender: FDA-Public Use
  Company Number: US-GE HEALTHCARE MEDICAL DIAGNOSTICS-OSCN-PR-1008S-0214

PATIENT
  Age: 42 Year
  Sex: Female

DRUGS (9)
  1. OMNISCAN [Suspect]
     Indication: OSTEOMYELITIS
     Route: 042
     Dates: start: 20051101, end: 20051101
  2. OMNISCAN [Suspect]
     Indication: ENCEPHALITIS
     Route: 042
     Dates: start: 20051128, end: 20051128
  3. OMNISCAN [Suspect]
     Indication: MENTAL STATUS CHANGES
     Route: 042
     Dates: start: 20051202, end: 20051202
  4. OMNISCAN [Suspect]
     Indication: CSF PROTEIN INCREASED
  5. OMNISCAN [Suspect]
     Indication: PYREXIA
  6. OMNISCAN [Suspect]
     Indication: NECK PAIN
  7. LASIX [Concomitant]
  8. AMITRIPTYLINE [Concomitant]
  9. FENTANYL [Concomitant]

REACTIONS (1)
  - Nephrogenic systemic fibrosis [Not Recovered/Not Resolved]
